FAERS Safety Report 19982765 (Version 1)
Quarter: 2021Q4

REPORT INFORMATION
  Report Type: Spontaneous
  Country: TR (occurrence: TR)
  Receive Date: 20211022
  Receipt Date: 20211022
  Transmission Date: 20220303
  Serious: Yes (Hospitalization, Other)
  Sender: FDA-Public Use
  Company Number: TR-SUN PHARMACEUTICAL INDUSTRIES LTD-2021RR-315133

PATIENT
  Age: 24 Year
  Sex: Female

DRUGS (1)
  1. METFORMIN [Suspect]
     Active Substance: METFORMIN HYDROCHLORIDE
     Indication: Product used for unknown indication
     Dosage: 100 DOSAGE FORM, SINGLE DOSE, 1000 MILLIGRAM PER DOSAGE FORM
     Route: 065

REACTIONS (2)
  - Suicide attempt [Unknown]
  - Lactic acidosis [Recovering/Resolving]
